FAERS Safety Report 8285011-0 (Version None)
Quarter: 2012Q2

REPORT INFORMATION
  Report Type: 
  Country: None (occurrence: None)
  Receive Date: 20120413
  Receipt Date: 20111214
  Transmission Date: 20120825
  Serious: No
  Sender: FDA-Public Use
  Company Number: US-ASTRAZENECA-2010SE57510

PATIENT
  Age: 77 Year
  Sex: Female

DRUGS (4)
  1. CRESTOR [Suspect]
     Route: 048
  2. NEXIUM [Suspect]
     Route: 048
  3. FISH OIL WITH OMEGA 3 [Concomitant]
  4. NIACIN [Concomitant]

REACTIONS (11)
  - INSOMNIA [None]
  - NASOPHARYNGITIS [None]
  - DRUG DOSE OMISSION [None]
  - BLOOD CHOLESTEROL INCREASED [None]
  - INFECTION [None]
  - MALAISE [None]
  - DYSPEPSIA [None]
  - CYST [None]
  - ARTHRITIS [None]
  - COUGH [None]
  - FATIGUE [None]
